FAERS Safety Report 6578224-7 (Version None)
Quarter: 2010Q1

REPORT INFORMATION
  Report Type: 
  Country: None (occurrence: None)
  Receive Date: 20100211
  Receipt Date: 20100209
  Transmission Date: 20100710
  Serious: Yes (Congenital Anomaly)
  Sender: FDA-Public Use
  Company Number: A0681654A

PATIENT
  Sex: Male

DRUGS (2)
  1. PAXIL [Suspect]
     Indication: DEPRESSION
     Dosage: 20MG PER DAY
     Dates: start: 19950501, end: 19950901
  2. VITAMIN TAB [Concomitant]

REACTIONS (6)
  - ATRIAL SEPTAL DEFECT [None]
  - CRANIOSYNOSTOSIS [None]
  - DEAFNESS [None]
  - DRUG EXPOSURE DURING PREGNANCY [None]
  - PULMONARY ARTERIAL HYPERTENSION [None]
  - VENTRICULAR SEPTAL DEFECT [None]
